FAERS Safety Report 5894858-7 (Version None)
Quarter: 2008Q3

REPORT INFORMATION
  Report Type: 
  Country: None (occurrence: None)
  Receive Date: 20080924
  Receipt Date: 20080703
  Transmission Date: 20090109
  Serious: No
  Sender: FDA-Public Use
  Company Number: US-ASTRAZENECA-2008UW13402

PATIENT
  Sex: Female

DRUGS (11)
  1. SEROQUEL [Suspect]
     Route: 048
     Dates: start: 20080627
  2. SEROQUEL [Suspect]
     Route: 048
     Dates: start: 20080628
  3. SEROQUEL [Suspect]
     Route: 048
     Dates: start: 20080629
  4. SEROQUEL [Suspect]
     Route: 048
     Dates: start: 20080630
  5. SEROQUEL [Suspect]
     Route: 048
     Dates: start: 20080701
  6. SEROQUEL [Suspect]
     Route: 048
     Dates: start: 20080702
  7. SEROQUEL [Suspect]
     Route: 048
     Dates: start: 20080703
  8. LAMICTAL [Concomitant]
  9. ARIMIDEX [Concomitant]
  10. BISOPROLOL FUMARATE [Concomitant]
  11. NAPROXEN [Concomitant]

REACTIONS (11)
  - ANGER [None]
  - ASTHENIA [None]
  - DYSARTHRIA [None]
  - FATIGUE [None]
  - FEELING ABNORMAL [None]
  - IRRITABILITY [None]
  - MUSCLE TIGHTNESS [None]
  - PAIN [None]
  - SLUGGISHNESS [None]
  - TONGUE DISORDER [None]
  - TREMOR [None]
